FAERS Safety Report 6389953-2 (Version None)
Quarter: 2009Q4

REPORT INFORMATION
  Report Type: 
  Country: None (occurrence: None)
  Receive Date: 20091006
  Receipt Date: 20090617
  Transmission Date: 20100525
  Serious: No
  Sender: FDA-Public Use
  Company Number: US-BRISTOL-MYERS SQUIBB COMPANY-14654966

PATIENT
  Age: 64 Year
  Sex: Female

DRUGS (1)
  1. AVAPRO [Suspect]
     Indication: HYPERTENSION
     Dosage: NO OF UNITS:90 DURATION = 2 TO 3 YEARS

REACTIONS (1)
  - DYSGEUSIA [None]
